FAERS Safety Report 7062666-X (Version None)
Quarter: 2010Q4

REPORT INFORMATION
  Report Type: 
  Country: None (occurrence: None)
  Receive Date: 20101026
  Receipt Date: 20091217
  Transmission Date: 20110411
  Serious: No
  Sender: FDA-Public Use
  Company Number: US-PFIZER INC-2009313166

PATIENT
  Sex: Male
  Weight: 92.971 kg

DRUGS (3)
  1. LIPITOR [Suspect]
     Indication: BLOOD CHOLESTEROL INCREASED
     Dosage: 10 MG, 1X/DAY
     Route: 048
     Dates: start: 20090101
  2. IBUPROFEN [Concomitant]
     Dosage: UNK
  3. BENADRYL [Concomitant]
     Dosage: UNK

REACTIONS (1)
  - TENDONITIS [None]
